FAERS Safety Report 17896386 (Version 2)
Quarter: 2021Q3

REPORT INFORMATION
  Report Type: Spontaneous
  Country: US (occurrence: US)
  Receive Date: 20200615
  Receipt Date: 20210827
  Transmission Date: 20211014
  Serious: Yes (Other)
  Sender: FDA-Public Use
  Company Number: US-PURDUE-USA-2020-0154464

PATIENT
  Sex: Male

DRUGS (6)
  1. HYSINGLA ER [Suspect]
     Active Substance: HYDROCODONE BITARTRATE
     Indication: PAIN
  2. HYSINGLA ER [Suspect]
     Active Substance: HYDROCODONE BITARTRATE
     Indication: FALL
     Dosage: 20 MG, BID
     Route: 048
     Dates: start: 2015
  3. HYDROCODONE BITARTRATE (SIMILAR TO NDA 206627) [Suspect]
     Active Substance: HYDROCODONE BITARTRATE
     Indication: PAIN
  4. HYDROCODONE BITARTRATE AND ACETAMINOPHEN [Suspect]
     Active Substance: ACETAMINOPHEN\HYDROCODONE BITARTRATE
     Indication: PAIN
  5. HYDROCODONE BITARTRATE (SIMILAR TO NDA 206627) [Suspect]
     Active Substance: HYDROCODONE BITARTRATE
     Indication: FALL
     Dosage: 10 MG, 12 TIMES DAILY
     Route: 065
     Dates: start: 2015
  6. HYDROCODONE BITARTRATE AND ACETAMINOPHEN [Suspect]
     Active Substance: ACETAMINOPHEN\HYDROCODONE BITARTRATE
     Indication: FALL
     Dosage: UNKNOWN
     Route: 048

REACTIONS (13)
  - Malabsorption [Unknown]
  - Constipation [Unknown]
  - Dysphagia [Unknown]
  - Colonoscopy [Unknown]
  - Anxiety [Unknown]
  - Therapeutic product effect decreased [Unknown]
  - Intestinal polyp [Unknown]
  - Hernia [Unknown]
  - Inclusion body myositis [Unknown]
  - Erectile dysfunction [Unknown]
  - Drug dependence [Unknown]
  - Weight decreased [Unknown]
  - Surgery [Unknown]

NARRATIVE: CASE EVENT DATE: 2016
